FAERS Safety Report 5683171-9 (Version None)
Quarter: 2008Q1

REPORT INFORMATION
  Report Type: 
  Country: None (occurrence: None)
  Receive Date: 20080326
  Receipt Date: 20080312
  Transmission Date: 20080703
  Serious: Yes (Hospitalization)
  Sender: FDA-Public Use
  Company Number: MEDI-0006643

PATIENT
  Age: 6 Month
  Sex: Female
  Weight: 9.04 kg

DRUGS (1)
  1. SYNAGIS [Suspect]

REACTIONS (2)
  - BRONCHIOLITIS [None]
  - HYPOXIA [None]
